FAERS Safety Report 7332782-3 (Version None)
Quarter: 2011Q1

REPORT INFORMATION
  Report Type: 
  Country: None (occurrence: None)
  Receive Date: 20110304
  Receipt Date: 20101021
  Transmission Date: 20110831
  Serious: Yes (Hospitalization, Other)
  Sender: FDA-Public Use
  Company Number: US-BAYER-201010032NA

PATIENT
  Sex: Female
  Weight: 59.091 kg

DRUGS (11)
  1. ZYRTEC [Concomitant]
     Indication: HYPERSENSITIVITY
  2. ZELNORM [Concomitant]
     Dosage: UNK
     Dates: start: 20051201
  3. YASMIN [Suspect]
     Dates: start: 20030101, end: 20080101
  4. ASCORBIC ACID [Concomitant]
     Dosage: 500 MG DAILY
  5. YASMIN [Suspect]
     Indication: PAIN
     Route: 048
     Dates: start: 20040901, end: 20051101
  6. DHE [DIHYDROERGOTAMINE MESILATE] [Concomitant]
     Dosage: UNK
     Dates: start: 20051201
  7. ASPIRIN [Concomitant]
     Dosage: UNK
     Dates: start: 20051201
  8. YASMIN [Suspect]
     Dates: start: 20010101, end: 20050101
  9. IBUPROFEN [Concomitant]
     Indication: PAIN
     Dosage: TWO 200 MG TABLETS
  10. IMITREX [Concomitant]
     Dosage: UNK
     Dates: start: 20051201
  11. PERCOCET [Concomitant]

REACTIONS (3)
  - CEREBRAL VENOUS THROMBOSIS [None]
  - JUGULAR VEIN THROMBOSIS [None]
  - SUPERIOR SAGITTAL SINUS THROMBOSIS [None]
